FAERS Safety Report 20054283 (Version 1)
Quarter: 2021Q4

REPORT INFORMATION
  Report Type: Spontaneous
  Country: US (occurrence: None)
  Receive Date: 20211110
  Receipt Date: 20211110
  Transmission Date: 20220303
  Serious: No
  Sender: FDA-Public Use
  Company Number: 2020SF75521

PATIENT
  Age: 5509 Day
  Sex: Male
  Weight: 53.5 kg

DRUGS (2)
  1. FASENRA [Suspect]
     Active Substance: BENRALIZUMAB
     Indication: Asthma
     Dosage: 30.0UG/ML UNKNOWN
     Route: 058
     Dates: start: 20201228
  2. FASENRA [Suspect]
     Active Substance: BENRALIZUMAB
     Indication: Eosinophilic oesophagitis
     Dosage: 30.0UG/ML UNKNOWN
     Route: 058
     Dates: start: 20201228

REACTIONS (1)
  - Headache [Not Recovered/Not Resolved]

NARRATIVE: CASE EVENT DATE: 20201228
